FAERS Safety Report 4320064-3 (Version None)
Quarter: 2004Q1

REPORT INFORMATION
  Report Type: 
  Country: None (occurrence: None)
  Receive Date: 20040317
  Receipt Date: 20040304
  Transmission Date: 20041129
  Serious: Yes (Other)
  Sender: FDA-Public Use
  Company Number: ZONI001351

PATIENT
  Age: 53 Year
  Sex: Female

DRUGS (7)
  1. ZONEGRAN [Suspect]
     Indication: CONVULSION
     Dates: start: 20031101
  2. TOPAMAX [Suspect]
     Indication: CONVULSION
     Dates: start: 20031101
  3. KEPPRA [Concomitant]
  4. LOPRESSOR/TOPROL (METOPROLOL) [Concomitant]
  5. PRILOSEC [Concomitant]
  6. METAMUCIL-2 [Concomitant]
  7. MIRALAX (POLYETHYLENE GLYCOL 3350) [Concomitant]

REACTIONS (3)
  - BLINDNESS UNILATERAL [None]
  - CATARACT [None]
  - CONVULSION [None]
